FAERS Safety Report 20657509 (Version 4)
Quarter: 2022Q2

REPORT INFORMATION
  Report Type: Spontaneous
  Country: US (occurrence: US)
  Receive Date: 20220331
  Receipt Date: 20220416
  Transmission Date: 20220720
  Serious: Yes (Hospitalization, Other)
  Sender: FDA-Public Use
  Company Number: US-UNITED THERAPEUTICS-UNT-2022-006924

PATIENT
  Age: 44 Year
  Sex: Female

DRUGS (2)
  1. REMODULIN [Suspect]
     Active Substance: TREPROSTINIL
     Indication: Pulmonary arterial hypertension
     Dosage: UNK UNK, CONTINUING
     Route: 058
     Dates: start: 20190206
  2. REMODULIN [Suspect]
     Active Substance: TREPROSTINIL
     Dosage: 0.0998 ?G/KG, CONTINUING
     Route: 058

REACTIONS (9)
  - Staphylococcal infection [Unknown]
  - Device dislocation [Unknown]
  - Infusion site mass [Unknown]
  - Infusion site warmth [Unknown]
  - Infusion site erythema [Unknown]
  - Pain [Unknown]
  - Infusion site pain [Unknown]
  - Infusion site infection [Unknown]
  - Wound [Not Recovered/Not Resolved]

NARRATIVE: CASE EVENT DATE: 20220301
